FAERS Safety Report 6058752-3 (Version None)
Quarter: 2009Q1

REPORT INFORMATION
  Report Type: 
  Country: None (occurrence: None)
  Receive Date: 20090130
  Receipt Date: 20090119
  Transmission Date: 20090719
  Serious: Yes (Hospitalization)
  Sender: FDA-Public Use
  Company Number: ES-CELGENEUS-144-CCAZA-09010899

PATIENT
  Sex: Female

DRUGS (2)
  1. AZACITIDINE [Suspect]
     Route: 065
     Dates: start: 20081101
  2. AZACITIDINE [Suspect]
     Route: 065
     Dates: start: 20081204, end: 20081211

REACTIONS (3)
  - MUCOUS MEMBRANE DISORDER [None]
  - PYREXIA [None]
  - TOXIC SKIN ERUPTION [None]
